FAERS Safety Report 7209394-5 (Version None)
Quarter: 2011Q1

REPORT INFORMATION
  Report Type: 
  Country: None (occurrence: None)
  Receive Date: 20110104
  Receipt Date: 20101223
  Transmission Date: 20110831
  Serious: No
  Sender: FDA-Public Use
  Company Number: US-ROXANE LABORATORIES, INC.-2010-RO-01725RO

PATIENT
  Sex: Female

DRUGS (3)
  1. AZATHIOPRINE [Suspect]
     Indication: CROHN'S DISEASE
     Dosage: 150 MG
     Route: 048
  2. BLOOD PRESSURE MEDICATION [Concomitant]
     Indication: BLOOD PRESSURE
  3. ASACOL [Concomitant]
     Indication: CROHN'S DISEASE

REACTIONS (1)
  - DRUG LEVEL DECREASED [None]
